FAERS Safety Report 4395051-X (Version None)
Quarter: 2004Q3

REPORT INFORMATION
  Report Type: 
  Country: None (occurrence: None)
  Receive Date: 20040707
  Receipt Date: 20040622
  Transmission Date: 20050211
  Serious: Yes (Other)
  Sender: FDA-Public Use
  Company Number: US-JNJFOC-20040606742

PATIENT
  Sex: 0

DRUGS (6)
  1. TYLENOL W/ CODEINE NO. 3 [Suspect]
     Indication: MIGRAINE
     Dosage: IN 1 AS NECESSARY
  2. PROZAC [Concomitant]
  3. PROGESTERONE [Concomitant]
  4. LORTAB [Concomitant]
  5. PRENATAL VITAMINS (PRENATAL VITAMINS) [Concomitant]
  6. DURAGESIC [Concomitant]

REACTIONS (2)
  - CONGENITAL VESICOURETERIC REFLUX [None]
  - DRUG EXPOSURE DURING PREGNANCY [None]
